FAERS Safety Report 7950892-4 (Version None)
Quarter: 2011Q4

REPORT INFORMATION
  Report Type: 
  Country: None (occurrence: None)
  Receive Date: 20111201
  Receipt Date: 20111124
  Transmission Date: 20120403
  Serious: Yes (Disabling)
  Sender: FDA-Public Use
  Company Number: FR-JNJFOC-20111110651

PATIENT
  Age: 66 Year
  Sex: Female

DRUGS (2)
  1. ULTRA LEVURE LYOPHILISEE [Concomitant]
     Indication: PRODUCT USED FOR UNKNOWN INDICATION
     Route: 065
     Dates: start: 20111101, end: 20111101
  2. LEVOFLOXACIN [Suspect]
     Indication: PRODUCT USED FOR UNKNOWN INDICATION
     Route: 048
     Dates: start: 20111101, end: 20111101

REACTIONS (1)
  - ARTHRALGIA [None]
